FAERS Safety Report 8771133 (Version 1)
Quarter: 2012Q4

REPORT INFORMATION
  Report Type: 
  Country: CN (occurrence: CN)
  Receive Date: 20120906
  Receipt Date: 20120906
  Transmission Date: 20130627
  Serious: Yes (Hospitalization)
  Sender: FDA-Public Use
  Company Number: CN-ASTRAZENECA-2012SE68145

PATIENT
  Age: 666 Month
  Sex: Female
  Weight: 67 kg

DRUGS (4)
  1. ESOMEPRAZOLE MAGNESIUM [Suspect]
     Indication: HYPERCHLORHYDRIA
     Route: 048
     Dates: start: 20101112, end: 20101127
  2. ESOMEPRAZOLE MAGNESIUM [Suspect]
     Indication: ARTHRITIS
     Route: 048
     Dates: start: 20101112, end: 20101127
  3. ESOMEPRAZOLE MAGNESIUM [Suspect]
     Indication: HYPERCHLORHYDRIA
     Route: 048
     Dates: start: 20110112, end: 20110112
  4. ESOMEPRAZOLE MAGNESIUM [Suspect]
     Indication: ARTHRITIS
     Route: 048
     Dates: start: 20110112, end: 20110112

REACTIONS (7)
  - Regurgitation [Recovered/Resolved]
  - Drug dose omission [Recovered/Resolved]
  - Abdominal pain [Recovered/Resolved]
  - Discomfort [Recovered/Resolved]
  - Blood pressure increased [Recovered/Resolved]
  - Abdominal distension [Recovered/Resolved]
  - Headache [Recovered/Resolved]
